FAERS Safety Report 7088636-3 (Version None)
Quarter: 2010Q4

REPORT INFORMATION
  Report Type: 
  Country: None (occurrence: None)
  Receive Date: 20101029
  Receipt Date: 20100913
  Transmission Date: 20110411
  Serious: Yes (Death)
  Sender: FDA-Public Use
  Company Number: 2010S1000210

PATIENT
  Sex: Female

DRUGS (4)
  1. INOMAX [Suspect]
     Indication: PULMONARY HYPERTENSION
     Dosage: 30 PPM;CONT;INH, 10 PPM;CONT;INH
     Route: 055
     Dates: end: 20100921
  2. INOMAX [Suspect]
     Indication: PULMONARY HYPERTENSION
     Dosage: 30 PPM;CONT;INH, 10 PPM;CONT;INH
     Route: 055
     Dates: start: 20100907
  3. INOMAX [Suspect]
     Indication: PULMONARY HYPERTENSION
     Dosage: 30 PPM;CONT;INH, 10 PPM;CONT;INH
     Route: 055
     Dates: end: 20100921
  4. INOMAX [Suspect]
     Indication: PULMONARY HYPERTENSION
     Dosage: 30 PPM;CONT;INH, 10 PPM;CONT;INH
     Route: 055
     Dates: start: 20100907

REACTIONS (2)
  - CARDIO-RESPIRATORY ARREST [None]
  - DEVICE MALFUNCTION [None]
